FAERS Safety Report 20669021 (Version 2)
Quarter: 2022Q2

REPORT INFORMATION
  Report Type: Spontaneous
  Country: DE (occurrence: DE)
  Receive Date: 20220404
  Receipt Date: 20220415
  Transmission Date: 20220720
  Serious: Yes (Other)
  Sender: FDA-Public Use
  Company Number: None

PATIENT
  Sex: Male

DRUGS (2)
  1. CYTOTEC [Suspect]
     Active Substance: MISOPROSTOL
     Indication: Labour induction
     Dosage: 50 UG
     Route: 064
     Dates: start: 202111
  2. CYTOTEC [Suspect]
     Active Substance: MISOPROSTOL
     Dosage: 2 WHOLE TABLETS WERE GIVEN AT 11:45 AM
     Route: 064

REACTIONS (3)
  - Motor developmental delay [Not Recovered/Not Resolved]
  - Muscular weakness [Not Recovered/Not Resolved]
  - Foetal exposure during delivery [Unknown]
